FAERS Safety Report 15361670 (Version 1)
Quarter: 2018Q3

REPORT INFORMATION
  Report Type: Spontaneous
  Country: US (occurrence: US)
  Receive Date: 20180831
  Receipt Date: 20180831
  Transmission Date: 20181010
  Serious: Yes (Hospitalization)
  Sender: FDA-Public Use
  Company Number: None

PATIENT
  Age: 28 Year
  Sex: Male
  Weight: 111.15 kg

DRUGS (1)
  1. ORITAVANCIN. [Suspect]
     Active Substance: ORITAVANCIN
     Indication: CELLULITIS
     Route: 040
     Dates: start: 20180828, end: 20180828

REACTIONS (5)
  - Pruritus generalised [None]
  - Feeling hot [None]
  - Pruritus [None]
  - Infusion related reaction [None]
  - Erythema [None]

NARRATIVE: CASE EVENT DATE: 20180828
